FAERS Safety Report 4677645-7 (Version None)
Quarter: 2005Q2

REPORT INFORMATION
  Report Type: 
  Country: None (occurrence: None)
  Receive Date: 20050526
  Receipt Date: 20050526
  Transmission Date: 20051028
  Serious: Yes (Life-Threatening)
  Sender: FDA-Public Use
  Company Number: None

PATIENT
  Age: 27 Year
  Sex: Female
  Weight: 45.3597 kg

DRUGS (3)
  1. ADVAIR DISKUS 250/50 [Suspect]
     Indication: ASTHMA
     Dosage: 250/50 TWICE PER DAY   ON + OFF FOR 2 YEARS 2002-2004  CONSISTENT OCT.04 - DEC.04
     Dates: start: 20020101, end: 20040101
  2. ADVAIR DISKUS 250/50 [Suspect]
     Indication: ASTHMA
     Dosage: 250/50 TWICE PER DAY   ON + OFF FOR 2 YEARS 2002-2004  CONSISTENT OCT.04 - DEC.04
     Dates: start: 20041001, end: 20041201
  3. DIFLUCAN [Concomitant]

REACTIONS (4)
  - DYSPNOEA [None]
  - FOOD ALLERGY [None]
  - OESOPHAGEAL CANDIDIASIS [None]
  - SENSATION OF FOREIGN BODY [None]
